FAERS Safety Report 26005035 (Version 1)
Quarter: 2025Q4

REPORT INFORMATION
  Report Type: Spontaneous
  Country: SY (occurrence: SY)
  Receive Date: 20251106
  Receipt Date: 20251106
  Transmission Date: 20260118
  Serious: Yes (Life-Threatening, Hospitalization, Other)
  Sender: STRIDES
  Company Number: SY-STRIDES ARCOLAB LIMITED-2025SP013754

PATIENT
  Age: 44 Year
  Sex: Female

DRUGS (1)
  1. METHOTREXATE [Suspect]
     Active Substance: METHOTREXATE
     Indication: Benign hydatidiform mole
     Dosage: UNK, FOUR DOSES
     Route: 065
     Dates: start: 2025

REACTIONS (4)
  - Haemorrhage [Unknown]
  - Disease progression [Unknown]
  - Drug resistance [Unknown]
  - Off label use [Unknown]
